FAERS Safety Report 19929818 (Version 1)
Quarter: 2021Q4

REPORT INFORMATION
  Report Type: Spontaneous
  Country: GB (occurrence: GB)
  Receive Date: 20211007
  Receipt Date: 20211007
  Transmission Date: 20220304
  Serious: Yes (Death, Other)
  Sender: FDA-Public Use
  Company Number: GB-KOREA IPSEN PHARMA-2021-24030

PATIENT
  Age: 39 Year
  Sex: Male

DRUGS (1)
  1. LANREOTIDE ACETATE [Suspect]
     Active Substance: LANREOTIDE ACETATE
     Indication: Acromegaly
     Dosage: DOSE AND FREQUENCY NOT REPORTED
     Route: 065
     Dates: start: 200911, end: 201002

REACTIONS (9)
  - Disease progression [Fatal]
  - Metastases to central nervous system [Fatal]
  - Haemorrhage intracranial [Unknown]
  - Ophthalmoplegia [Unknown]
  - Dysphagia [Unknown]
  - Epistaxis [Unknown]
  - Rhinorrhoea [Unknown]
  - Confusional state [Unknown]
  - Drug ineffective [Unknown]

NARRATIVE: CASE EVENT DATE: 20110901
